FAERS Safety Report 8925574 (Version 3)
Quarter: 2013Q1

REPORT INFORMATION
  Report Type: Spontaneous
  Country: AU (occurrence: AU)
  Receive Date: 20121126
  Receipt Date: 20130115
  Transmission Date: 20140127
  Serious: Yes (Death, Other)
  Sender: FDA-Public Use
  Company Number: AU-PFIZER INC-2012292721

PATIENT
  Sex: Female

DRUGS (4)
  1. FLUOROURACIL [Suspect]
     Indication: COLON CANCER
     Route: 042
  2. CALCIUM FOLINATE [Suspect]
     Indication: COLON CANCER
     Route: 042
  3. OXALIPLATIN [Suspect]
     Indication: COLON CANCER
     Route: 042
  4. BEVACIZUMAB [Suspect]
     Indication: COLON CANCER
     Route: 042

REACTIONS (5)
  - Disease progression [Fatal]
  - Colon cancer [Fatal]
  - Intestinal obstruction [Unknown]
  - Pain [Unknown]
  - Fistula [Unknown]
